FAERS Safety Report 15305849 (Version 1)
Quarter: 2018Q3

REPORT INFORMATION
  Report Type: Spontaneous
  Country: US (occurrence: US)
  Receive Date: 20180822
  Receipt Date: 20180822
  Transmission Date: 20181010
  Serious: Yes (Other)
  Sender: FDA-Public Use
  Company Number: US-ROCHE-2169312

PATIENT
  Age: 64 Year
  Sex: Female

DRUGS (1)
  1. ALECENSA [Suspect]
     Active Substance: ALECTINIB HYDROCHLORIDE
     Indication: PRODUCT USED FOR UNKNOWN INDICATION
     Dosage: INTERRUPTED TILL 01/AUG/2018
     Route: 065

REACTIONS (2)
  - Uterine cancer [Unknown]
  - Brain neoplasm [Unknown]

NARRATIVE: CASE EVENT DATE: 201806
